FAERS Safety Report 20756250 (Version 1)
Quarter: 2022Q2

REPORT INFORMATION
  Report Type: Spontaneous
  Country: IN (occurrence: GB)
  Receive Date: 20220427
  Receipt Date: 20220427
  Transmission Date: 20220721
  Serious: Yes (Other)
  Sender: FDA-Public Use
  Company Number: IN-MYLANLABS-2022M1030544

PATIENT
  Age: 83 Year
  Sex: Female

DRUGS (4)
  1. DORZOLAMIDE [Suspect]
     Active Substance: DORZOLAMIDE
     Indication: Glaucoma
     Dosage: UNK
     Route: 065
  2. TIMOLOL [Suspect]
     Active Substance: TIMOLOL
     Indication: Glaucoma
     Dosage: UNK
     Route: 065
  3. BIMATOPROST [Suspect]
     Active Substance: BIMATOPROST
     Indication: Glaucoma
     Dosage: UNK
     Route: 065
  4. LATANOPROST [Suspect]
     Active Substance: LATANOPROST
     Indication: Glaucoma
     Dosage: UNK
     Route: 065

REACTIONS (2)
  - Conjunctivitis [Recovering/Resolving]
  - Conjunctival scar [Recovering/Resolving]

NARRATIVE: CASE EVENT DATE: 20130101
